FAERS Safety Report 15089359 (Version 1)
Quarter: 2018Q2

REPORT INFORMATION
  Report Type: Spontaneous
  Country: US (occurrence: US)
  Receive Date: 20180629
  Receipt Date: 20180629
  Transmission Date: 20180711
  Serious: No
  Sender: FDA-Public Use
  Company Number: US-EGALET US INC-US-2017EGA001085

PATIENT

DRUGS (1)
  1. SPRIX [Suspect]
     Active Substance: KETOROLAC TROMETHAMINE
     Indication: PRODUCT USED FOR UNKNOWN INDICATION
     Dosage: UNK

REACTIONS (7)
  - Nasal discomfort [Unknown]
  - Drug ineffective [None]
  - Pollakiuria [None]
  - Scratch [Unknown]
  - Product storage error [Unknown]
  - Wrong technique in product usage process [None]
  - Product distribution issue [Unknown]
